FAERS Safety Report 6474896-6 (Version None)
Quarter: 2009Q4

REPORT INFORMATION
  Report Type: 
  Country: None (occurrence: None)
  Receive Date: 20091123
  Receipt Date: 20090925
  Transmission Date: 20100525
  Serious: No
  Sender: FDA-Public Use
  Company Number: 8052713

PATIENT
  Age: 32 Year
  Sex: Female

DRUGS (1)
  1. CIMZIA [Suspect]
     Dosage: 400 MG SC
     Route: 058
     Dates: start: 20080924

REACTIONS (4)
  - CHILLS [None]
  - FEELING COLD [None]
  - NAUSEA [None]
  - PRODUCT QUALITY ISSUE [None]
